FAERS Safety Report 10249954 (Version 1)
Quarter: 2014Q2

REPORT INFORMATION
  Report Type: Report from Study
  Country: US (occurrence: US)
  Receive Date: 20140620
  Receipt Date: 20140620
  Transmission Date: 20141212
  Serious: Yes (Hospitalization)
  Sender: FDA-Public Use
  Company Number: US-B.I. PHARMACEUTICALS,INC./RIDGEFIELD-2014-BI-27185BI

PATIENT
  Age: 82 Year
  Sex: Male

DRUGS (9)
  1. GILOTRIF [Suspect]
     Indication: LUNG NEOPLASM MALIGNANT
     Dosage: 40 MG
     Route: 048
     Dates: start: 20140517, end: 20140610
  2. CENTRUM [Concomitant]
     Route: 065
  3. METOPROLOL [Concomitant]
     Route: 065
  4. WARFARIN SODIUM [Concomitant]
     Route: 065
  5. LOPERAMIDE [Concomitant]
     Route: 065
  6. VYTORIN [Concomitant]
     Route: 065
  7. BENICAR [Concomitant]
     Route: 065
  8. METAMUCIL [Concomitant]
     Route: 065
  9. EUCERIN [Concomitant]
     Route: 065

REACTIONS (1)
  - Oedema [Unknown]
